FAERS Safety Report 6004601-9 (Version None)
Quarter: 2008Q4

REPORT INFORMATION
  Report Type: 
  Country: None (occurrence: None)
  Receive Date: 20081216
  Receipt Date: 20080522
  Transmission Date: 20090506
  Serious: No
  Sender: FDA-Public Use
  Company Number: US-BRISTOL-MYERS SQUIBB COMPANY-14158471

PATIENT
  Age: 58 Year
  Sex: Male

DRUGS (1)
  1. PRAVASTATIN SODIUM [Suspect]
     Indication: BLOOD CHOLESTEROL INCREASED
     Dosage: 1 DOSAGE FORM = 40(UNIT NOT SPECIFIED)
     Route: 048
     Dates: start: 20080407

REACTIONS (1)
  - SPONTANEOUS PENILE ERECTION [None]
